FAERS Safety Report 4338547-9 (Version None)
Quarter: 2004Q2

REPORT INFORMATION
  Report Type: 
  Country: None (occurrence: None)
  Receive Date: 20040409
  Receipt Date: 20030129
  Transmission Date: 20050107
  Serious: Yes (Hospitalization, Other)
  Sender: FDA-Public Use
  Company Number: 2003-05226

PATIENT
  Age: 45 Year
  Sex: Male
  Weight: 54.4316 kg

DRUGS (7)
  1. VIREAD (TENOFOVIR DISOPROXIL FUMARATE) (TABLET) [Suspect]
     Indication: HIV INFECTION
     Dosage: 300 MG, ONCE A DAY, ORAL
     Route: 048
     Dates: start: 20020711
  2. VIRAMMUNE (NEVIRAPINE) (TABLET) [Suspect]
     Indication: HIV INFECTION
     Dosage: 400 MG, ORAL
     Route: 048
     Dates: start: 20020108
  3. ATAZANAVIR (ATAZANAVIR) [Suspect]
     Indication: HIV INFECTION
     Dosage: 400 MG, ONCE A DAY, ORAL
     Route: 048
     Dates: start: 20021220, end: 20030114
  4. FUZEON (T-20) (ENFUVIRTIDE) [Concomitant]
  5. METHADONE (METHADONE) [Concomitant]
  6. ZOVIRAX [Concomitant]
  7. DIFLUCAN [Concomitant]

REACTIONS (1)
  - DYSKINESIA [None]
